FAERS Safety Report 25342512 (Version 1)
Quarter: 2025Q2

REPORT INFORMATION
  Report Type: Spontaneous
  Country: US (occurrence: US)
  Receive Date: 20250521
  Receipt Date: 20250521
  Transmission Date: 20250716
  Serious: No
  Sender: CATALYST PHARMA
  Company Number: US-CATALYST PHARMACEUTICALS-US-CATA-25-00355

PATIENT
  Age: 3 Year
  Sex: Male
  Weight: 17.234 kg

DRUGS (8)
  1. AGAMREE [Suspect]
     Active Substance: VAMOROLONE
     Indication: Duchenne muscular dystrophy
     Dosage: 1.6 ML ONCE A DAY
     Route: 048
     Dates: start: 20240520
  2. AGAMREE [Suspect]
     Active Substance: VAMOROLONE
     Dosage: 2.2 ML ONCE A DAY
     Route: 048
     Dates: start: 20250116
  3. EPSOM SALT [Concomitant]
     Active Substance: MAGNESIUM SULFATE
     Indication: Myalgia
     Dosage: 2 TABLESPOONS EVERY OTHER DAY
     Route: 061
  4. EXONDYS [Concomitant]
     Indication: Duchenne muscular dystrophy
     Dosage: 500 MG IV ONCE A WEEK
     Route: 042
  5. LITTLE NOSE SALINE [Concomitant]
     Indication: Nasal congestion
     Route: 045
  6. MAGNESIUM CHLORIDE [Concomitant]
     Active Substance: MAGNESIUM CHLORIDE
     Indication: Sleep disorder
     Route: 061
  7. TUMS [Concomitant]
     Active Substance: CALCIUM CARBONATE
     Indication: Bone disorder
     Dosage: 500 MG ONCE A DAY
     Route: 065
  8. VITAMIN D3 [Concomitant]
     Active Substance: CHOLECALCIFEROL
     Indication: Bone disorder
     Dosage: 1000 IU ONCE A DAY
     Route: 065

REACTIONS (4)
  - Nasal congestion [Recovered/Resolved]
  - Pyrexia [Recovered/Resolved]
  - Influenza [Recovered/Resolved]
  - Vomiting [Recovered/Resolved]

NARRATIVE: CASE EVENT DATE: 20250201
